FAERS Safety Report 25461437 (Version 1)
Quarter: 2025Q2

REPORT INFORMATION
  Report Type: Spontaneous
  Country: JP (occurrence: JP)
  Receive Date: 20250620
  Receipt Date: 20250620
  Transmission Date: 20250717
  Serious: Yes (Hospitalization)
  Sender: BAUSCH AND LOMB
  Company Number: JP-BAUSCH-BL-2025-007670

PATIENT
  Age: 7 Decade
  Sex: Female

DRUGS (3)
  1. BUDESONIDE [Suspect]
     Active Substance: BUDESONIDE
     Indication: Colitis ulcerative
     Route: 054
  2. CAROTEGRAST METHYL [Suspect]
     Active Substance: CAROTEGRAST METHYL
     Indication: Colitis ulcerative
     Route: 048
     Dates: start: 202504, end: 202505
  3. MESALAMINE [Concomitant]
     Active Substance: MESALAMINE
     Indication: Product used for unknown indication

REACTIONS (2)
  - Colitis ulcerative [Recovering/Resolving]
  - Therapeutic product effect incomplete [Unknown]
